FAERS Safety Report 7319858-1 (Version None)
Quarter: 2011Q1

REPORT INFORMATION
  Report Type: 
  Country: None (occurrence: None)
  Receive Date: 20110228
  Receipt Date: 20101022
  Transmission Date: 20110831
  Serious: No
  Sender: FDA-Public Use
  Company Number: A0889159A

PATIENT
  Age: 40 Year
  Sex: Female

DRUGS (2)
  1. LAMICTAL [Suspect]
     Indication: EPILEPSY
     Dosage: 50MGD PER DAY
     Route: 048
     Dates: start: 20101015
  2. MIRENA [Concomitant]

REACTIONS (2)
  - OVERDOSE [None]
  - MEDICATION ERROR [None]
